FAERS Safety Report 16968914 (Version 1)
Quarter: 2019Q4

REPORT INFORMATION
  Report Type: Spontaneous
  Country: GB (occurrence: GB)
  Receive Date: 20191029
  Receipt Date: 20191029
  Transmission Date: 20200122
  Serious: Yes (Other)
  Sender: FDA-Public Use
  Company Number: GB-TEVA-2019-GB-1127744

PATIENT
  Age: 33 Year
  Sex: Female
  Weight: 76 kg

DRUGS (3)
  1. FEMODENE [Concomitant]
     Active Substance: ETHINYL ESTRADIOL\GESTODENE
     Dosage: FOR 21 DAYS FOLLOWED BY 7 TABLET FREE DAYS
     Dates: start: 20190809
  2. TRIMETHOPRIM. [Suspect]
     Active Substance: TRIMETHOPRIM
     Indication: SINUSITIS
     Dosage: FOR 7 DAYS AFTER PROVIDING URINE SAMPLE TO THE LAB (400 MILLIGRAM)
     Dates: start: 20190930
  3. NITROFURANTOIN. [Concomitant]
     Active Substance: NITROFURANTOIN
     Dosage: 200 MILLIGRAM PER DAY
     Dates: start: 20190724

REACTIONS (2)
  - Wheezing [Unknown]
  - Urticaria [Recovered/Resolved]

NARRATIVE: CASE EVENT DATE: 20180118
